FAERS Safety Report 8359170-5 (Version None)
Quarter: 2012Q2

REPORT INFORMATION
  Report Type: 
  Country: None (occurrence: None)
  Receive Date: 20120511
  Receipt Date: 20120511
  Transmission Date: 20120825
  Serious: Yes (Death)
  Sender: FDA-Public Use
  Company Number: None

PATIENT
  Age: 72 Year
  Sex: Female
  Weight: 74.3899 kg

DRUGS (1)
  1. PRADAXA [Suspect]
     Dosage: 150MG X 2
     Dates: start: 20110625

REACTIONS (2)
  - HAEMOPTYSIS [None]
  - PULMONARY THROMBOSIS [None]
